FAERS Safety Report 5416400-7 (Version None)
Quarter: 2007Q3

REPORT INFORMATION
  Report Type: 
  Country: None (occurrence: None)
  Receive Date: 20070814
  Receipt Date: 20070731
  Transmission Date: 20080115
  Serious: Yes (Death, Hospitalization)
  Sender: FDA-Public Use
  Company Number: POMP-11126

PATIENT
  Age: 47 Week
  Sex: Male

DRUGS (5)
  1. MYOZYME [Suspect]
     Indication: GLYCOGEN STORAGE DISEASE TYPE II
     Dosage: 20 MG/KG Q2WKS IV
     Route: 042
     Dates: start: 20070109, end: 20070711
  2. UNASYN [Concomitant]
  3. ARGININ [Concomitant]
  4. HYDROCORTISONE [Concomitant]
  5. EPINEPHRINE [Concomitant]

REACTIONS (9)
  - BLOOD CHLORIDE DECREASED [None]
  - BLOOD GLUCOSE INCREASED [None]
  - BLOOD MAGNESIUM INCREASED [None]
  - BLOOD PH DECREASED [None]
  - BLOOD POTASSIUM INCREASED [None]
  - BLOOD SODIUM DECREASED [None]
  - CARDIO-RESPIRATORY ARREST [None]
  - PNEUMONIA ASPIRATION [None]
  - RESPIRATORY FAILURE [None]
